FAERS Safety Report 7538734-2 (Version None)
Quarter: 2011Q2

REPORT INFORMATION
  Report Type: 
  Country: None (occurrence: None)
  Receive Date: 20110610
  Receipt Date: 20110607
  Transmission Date: 20111010
  Serious: Yes (Other)
  Sender: FDA-Public Use
  Company Number: US-PFIZER INC-2011095496

PATIENT
  Sex: Male
  Weight: 108 kg

DRUGS (10)
  1. LISINOPRIL [Concomitant]
     Dosage: UNK
  2. WARFARIN [Concomitant]
     Dosage: UNK
  3. RANITIDINE [Concomitant]
     Dosage: UNK
  4. ACETYLSALICYLIC ACID [Concomitant]
     Dosage: UNK
  5. NITROGLYCERIN [Concomitant]
     Dosage: UNK
  6. LIPITOR [Suspect]
     Indication: BLOOD CHOLESTEROL INCREASED
     Dosage: 40 MG, DAILY
     Route: 048
     Dates: start: 20080601
  7. LASIX [Concomitant]
     Dosage: UNK
  8. COREG [Concomitant]
     Dosage: UNK
  9. SPIRONOLACTONE [Concomitant]
     Dosage: UNK
  10. METFORMIN [Concomitant]
     Dosage: UNK

REACTIONS (1)
  - BLOOD TRIGLYCERIDES ABNORMAL [None]
